FAERS Safety Report 4934838-9 (Version None)
Quarter: 2006Q1

REPORT INFORMATION
  Report Type: 
  Country: None (occurrence: None)
  Receive Date: 20060303
  Receipt Date: 20060228
  Transmission Date: 20060701
  Serious: Yes (Other)
  Sender: FDA-Public Use
  Company Number: SU-2006-004610

PATIENT
  Age: 80 Year
  Sex: Female

DRUGS (12)
  1. OLMETEC [Suspect]
     Dosage: 20 MG QD PO
     Route: 048
     Dates: start: 20050901
  2. NORVASC [Suspect]
     Indication: HYPERTENSION
     Dosage: 7.5 MG QD PO
     Route: 048
     Dates: start: 20051001, end: 20060101
  3. NEORAL [Concomitant]
  4. SELBEX [Concomitant]
  5. LANSOPRAZOLE [Concomitant]
  6. SULFAMETHOXAZOLE + TRIMETHOPRIM [Concomitant]
  7. PREDNISOLONE [Concomitant]
  8. BONALON [Concomitant]
  9. MEVALOTIN [Concomitant]
  10. AMARYL [Concomitant]
  11. LENDORMIN [Concomitant]
  12. HALFDIGOXIN [Concomitant]

REACTIONS (1)
  - PLATELET COUNT DECREASED [None]
